FAERS Safety Report 7070027-2 (Version None)
Quarter: 2010Q4

REPORT INFORMATION
  Report Type: 
  Country: None (occurrence: None)
  Receive Date: 20101028
  Receipt Date: 20100811
  Transmission Date: 20110411
  Serious: No
  Sender: FDA-Public Use
  Company Number: US-WYE-H16911210

PATIENT
  Age: 63 Year
  Sex: Female
  Weight: 90.8 kg

DRUGS (1)
  1. ADVIL [Suspect]
     Indication: INFLAMMATION
     Dosage: 2 TABLETS EVERY 4-6 HOURS
     Route: 048
     Dates: start: 20100801, end: 20100810

REACTIONS (2)
  - LIP SWELLING [None]
  - SWELLING [None]
